FAERS Safety Report 12886257 (Version 2)
Quarter: 2016Q4

REPORT INFORMATION
  Report Type: Report from Study
  Country: AU (occurrence: AU)
  Receive Date: 20161026
  Receipt Date: 20161118
  Transmission Date: 20170207
  Serious: Yes (Hospitalization, Other)
  Sender: FDA-Public Use
  Company Number: AU-BRISTOL-MYERS SQUIBB COMPANY-BMS-2016-079260

PATIENT
  Sex: Male

DRUGS (1)
  1. DASATINIB [Suspect]
     Active Substance: DASATINIB
     Indication: CHRONIC MYELOID LEUKAEMIA
     Dosage: 100 MG, QD
     Route: 048
     Dates: start: 20160801

REACTIONS (7)
  - Gait disturbance [Unknown]
  - Pneumonia [Recovering/Resolving]
  - Transfusion [Unknown]
  - Dizziness [Unknown]
  - Fatigue [Unknown]
  - Haemorrhage [Unknown]
  - Dysgeusia [Unknown]
